FAERS Safety Report 16125696 (Version 1)
Quarter: 2019Q1

REPORT INFORMATION
  Report Type: Spontaneous
  Country: FR (occurrence: FR)
  Receive Date: 20190328
  Receipt Date: 20190328
  Transmission Date: 20190418
  Serious: Yes (Life-Threatening)
  Sender: FDA-Public Use
  Company Number: FR-ROCHE-2288724

PATIENT
  Age: 67 Year
  Sex: Male
  Weight: 90 kg

DRUGS (8)
  1. HALDOL [Concomitant]
     Active Substance: HALOPERIDOL
     Route: 048
  2. RITUXIMAB. [Suspect]
     Active Substance: RITUXIMAB
     Indication: HAIRY CELL LEUKAEMIA
     Route: 042
     Dates: start: 20181217
  3. NIPENT [Suspect]
     Active Substance: PENTOSTATIN
     Indication: HAIRY CELL LEUKAEMIA
     Route: 042
     Dates: start: 20181217
  4. TERBUTALINE SULFATE. [Concomitant]
     Active Substance: TERBUTALINE SULFATE
     Route: 055
  5. NOCTAMIDE [Concomitant]
     Active Substance: LORMETAZEPAM
     Route: 048
  6. KEPPRA [Concomitant]
     Active Substance: LEVETIRACETAM
     Route: 048
  7. PARKINANE [Concomitant]
     Active Substance: TRIHEXYPHENIDYL HYDROCHLORIDE
     Route: 048
  8. EFFEXOR [Concomitant]
     Active Substance: VENLAFAXINE HYDROCHLORIDE
     Route: 048

REACTIONS (4)
  - Pallor [Recovered/Resolved]
  - Dyspnoea [Recovered/Resolved]
  - Hypotension [Recovered/Resolved]
  - Loss of consciousness [Recovered/Resolved]

NARRATIVE: CASE EVENT DATE: 20190207
